FAERS Safety Report 9408942 (Version 1)
Quarter: 2013Q3

REPORT INFORMATION
  Report Type: Spontaneous
  Country: FR (occurrence: FR)
  Receive Date: 20130719
  Receipt Date: 20130719
  Transmission Date: 20140515
  Serious: Yes (Other)
  Sender: FDA-Public Use
  Company Number: FR-SHIRE-ALL1-2013-04798

PATIENT
  Sex: Male

DRUGS (2)
  1. XAGRID [Suspect]
     Indication: ESSENTIAL THROMBOCYTHAEMIA
     Dosage: 0.5 MG, 2X/DAY:BID
     Route: 048
  2. XAGRID [Suspect]
     Dosage: 0.5 MG, 1X/DAY:QD
     Route: 048

REACTIONS (3)
  - Cell death [Unknown]
  - Cholestasis [Unknown]
  - Condition aggravated [Unknown]
